FAERS Safety Report 7132799-8 (Version None)
Quarter: 2010Q4

REPORT INFORMATION
  Report Type: 
  Country: None (occurrence: None)
  Receive Date: 20101202
  Receipt Date: 20101123
  Transmission Date: 20110411
  Serious: No
  Sender: FDA-Public Use
  Company Number: US-PFIZER INC-2010156292

PATIENT
  Sex: Female
  Weight: 96.145 kg

DRUGS (7)
  1. PRISTIQ [Suspect]
     Dosage: 50 MG, 1X/DAY
     Route: 048
     Dates: start: 20101119
  2. OMEPRAZOLE [Concomitant]
     Indication: DYSPEPSIA
     Dosage: 20 MG, UNK
  3. DIOVAN HCT [Concomitant]
     Indication: HYPERTENSION
     Dosage: 320/25 MG, UNK
  4. METFORMIN [Concomitant]
     Dosage: 1000 MG, UNK
  5. PREMARIN [Concomitant]
     Dosage: 0.3 MG, UNK
  6. LEVOXYL [Concomitant]
     Dosage: 150 MG, UNK
  7. COREG [Concomitant]
     Dosage: UNK

REACTIONS (1)
  - ASTHENIA [None]
